FAERS Safety Report 5689722-2 (Version None)
Quarter: 2008Q1

REPORT INFORMATION
  Report Type: 
  Country: None (occurrence: None)
  Receive Date: 20080328
  Receipt Date: 20080204
  Transmission Date: 20080703
  Serious: Yes (Disabling)
  Sender: FDA-Public Use
  Company Number: 2008000705

PATIENT
  Age: 86 Year
  Sex: Male
  Weight: 80 kg

DRUGS (1)
  1. MACUGEN [Suspect]
     Indication: MACULAR DEGENERATION
     Dosage: (0.3 MG, Q 6 WKS), INTRA-VITREAL
     Dates: start: 20070809

REACTIONS (2)
  - VISUAL ACUITY REDUCED [None]
  - VITREOUS FIBRIN [None]
